FAERS Safety Report 7301300-8 (Version None)
Quarter: 2011Q1

REPORT INFORMATION
  Report Type: 
  Country: None (occurrence: None)
  Receive Date: 20110218
  Receipt Date: 20110208
  Transmission Date: 20110831
  Serious: Yes (Life-Threatening, Hospitalization, Other)
  Sender: FDA-Public Use
  Company Number: US-SANOFI-AVENTIS-2011SA006052

PATIENT
  Age: 81 Year
  Sex: Male
  Weight: 64 kg

DRUGS (4)
  1. MULTAQ [Suspect]
     Indication: ATRIAL FIBRILLATION
     Route: 048
     Dates: start: 20110111
  2. DABIGATRAN ETEXILATE [Interacting]
     Route: 065
  3. ALDACTONE [Concomitant]
     Dosage: LOW DOSE
  4. LASIX [Concomitant]

REACTIONS (17)
  - CREATININE RENAL CLEARANCE DECREASED [None]
  - URINE OUTPUT DECREASED [None]
  - DYSPNOEA [None]
  - DRUG INTERACTION [None]
  - HAEMORRHAGE URINARY TRACT [None]
  - ACTIVATED PARTIAL THROMBOPLASTIN TIME PROLONGED [None]
  - GASTROINTESTINAL HAEMORRHAGE [None]
  - HYPERKALAEMIA [None]
  - URINARY RETENTION [None]
  - BLOOD UREA INCREASED [None]
  - RENAL FAILURE ACUTE [None]
  - CARDIAC ARREST [None]
  - PROTHROMBIN TIME PROLONGED [None]
  - ATRIOVENTRICULAR BLOCK COMPLETE [None]
  - ACIDOSIS [None]
  - RESPIRATORY FAILURE [None]
  - THROMBOCYTOPENIA [None]
